FAERS Safety Report 9097052 (Version 1)
Quarter: 2013Q1

REPORT INFORMATION
  Report Type: Spontaneous
  Country: GB (occurrence: None)
  Receive Date: 20130123
  Receipt Date: 20130123
  Transmission Date: 20140127
  Serious: Yes (Other)
  Sender: FDA-Public Use
  Company Number: GER/UKI/13/0027441

PATIENT
  Age: 81 Year
  Sex: Male

DRUGS (3)
  1. CLOPIDOGREL (CLOPIDOGREL) [Suspect]
     Indication: PRODUCT USED FOR UNKNOWN INDICATION
     Route: 048
  2. BRILIQUE [Suspect]
     Dosage: 1 DOSAGE FORMS
     Route: 048
  3. PRASUGREL (PRASUGREL) [Concomitant]

REACTIONS (6)
  - Dermatitis allergic [None]
  - Contusion [None]
  - Carotid artery occlusion [None]
  - Dizziness [None]
  - Heart rate decreased [None]
  - Impaired driving ability [None]
